FAERS Safety Report 8337721 (Version 3)
Quarter: 2014Q1

REPORT INFORMATION
  Report Type: Spontaneous
  Country: US (occurrence: US)
  Receive Date: 20120116
  Receipt Date: 20140129
  Transmission Date: 20141002
  Serious: Yes (Hospitalization, Other)
  Sender: FDA-Public Use
  Company Number: US-BAYER-2012-002952

PATIENT
  Age: 26 Year
  Sex: Female
  Weight: 58.96 kg

DRUGS (2)
  1. YAZ [Suspect]
     Indication: ORAL CONTRACEPTION
     Dosage: UNK
     Dates: start: 200806, end: 201002
  2. YAZ [Suspect]
     Indication: PREMENSTRUAL SYNDROME

REACTIONS (12)
  - Cholecystitis [None]
  - Biliary dyskinesia [None]
  - Gallbladder disorder [None]
  - Pain [None]
  - Injury [None]
  - Emotional distress [None]
  - Anxiety [None]
  - Psychological trauma [None]
  - Fear [None]
  - Abdominal pain [None]
  - Procedural pain [None]
  - Dyspepsia [None]
